FAERS Safety Report 7400430-X (Version None)
Quarter: 2011Q2

REPORT INFORMATION
  Report Type: 
  Country: None (occurrence: None)
  Receive Date: 20110407
  Receipt Date: 20110329
  Transmission Date: 20111010
  Serious: Yes (Hospitalization)
  Sender: FDA-Public Use
  Company Number: BR-ASTRAZENECA-2011SE18397

PATIENT
  Age: 48 Year
  Sex: Male

DRUGS (5)
  1. BALCOR [Concomitant]
     Route: 048
     Dates: start: 20090101
  2. CRESTOR [Suspect]
     Indication: BLOOD CHOLESTEROL INCREASED
     Route: 048
     Dates: start: 20090101
  3. SUSTRATE [Concomitant]
     Route: 048
     Dates: start: 20090101
  4. SOMALGIN [Concomitant]
     Route: 048
     Dates: start: 20090101
  5. CLOPIDOGREL [Concomitant]
     Route: 048
     Dates: start: 20090101, end: 20100101

REACTIONS (3)
  - MYOCARDIAL INFARCTION [None]
  - CHEST PAIN [None]
  - RESTLESSNESS [None]
